FAERS Safety Report 9720964 (Version 1)
Quarter: 2013Q4

REPORT INFORMATION
  Report Type: Spontaneous
  Country: US (occurrence: US)
  Receive Date: 20131129
  Receipt Date: 20131129
  Transmission Date: 20140711
  Serious: Yes (Disabling, Other)
  Sender: FDA-Public Use
  Company Number: US-SA-2013SA122559

PATIENT
  Age: 56 Year
  Sex: Male

DRUGS (1)
  1. AMBIEN [Suspect]
     Indication: SLEEP DISORDER
     Route: 065

REACTIONS (3)
  - Disability [Unknown]
  - Sleep-related eating disorder [Unknown]
  - Somnambulism [Unknown]
